FAERS Safety Report 4599486-1 (Version None)
Quarter: 2005Q1

REPORT INFORMATION
  Report Type: 
  Country: None (occurrence: None)
  Receive Date: 20050303
  Receipt Date: 20050211
  Transmission Date: 20050727
  Serious: Yes (Death)
  Sender: FDA-Public Use
  Company Number: USA050290547

PATIENT
  Age: 63 Year
  Sex: Male

DRUGS (1)
  1. HUMALOG [Suspect]

REACTIONS (1)
  - CARDIAC FAILURE [None]
